FAERS Safety Report 8768556 (Version 1)
Quarter: 2012Q4

REPORT INFORMATION
  Report Type: 
  Country: VE (occurrence: VE)
  Receive Date: 20120906
  Receipt Date: 20120906
  Transmission Date: 20130627
  Serious: Yes (Other)
  Sender: FDA-Public Use
  Company Number: VE-ROCHE-1113433

PATIENT
  Age: 45 Year
  Sex: Female
  Weight: 65 kg

DRUGS (4)
  1. HERCEPTIN [Suspect]
     Indication: BREAST CANCER
     Route: 042
     Dates: start: 20120321, end: 20120816
  2. EPIRUBICIN [Concomitant]
     Indication: BREAST CANCER
     Route: 065
     Dates: start: 20120319, end: 20120712
  3. CYCLOPHOSPHAMIDE [Concomitant]
     Indication: BREAST CANCER
     Route: 065
     Dates: start: 20120319, end: 20120712
  4. 5-FLUOROURACIL [Concomitant]
     Indication: BREAST CANCER
     Route: 065
     Dates: start: 20120319, end: 20120712

REACTIONS (1)
  - Diastolic dysfunction [Not Recovered/Not Resolved]
